FAERS Safety Report 5831237-2 (Version None)
Quarter: 2008Q3

REPORT INFORMATION
  Report Type: 
  Country: None (occurrence: None)
  Receive Date: 20080801
  Receipt Date: 20080324
  Transmission Date: 20090109
  Serious: No
  Sender: FDA-Public Use
  Company Number: US-BRISTOL-MYERS SQUIBB COMPANY-14124655

PATIENT
  Age: 70 Year
  Sex: Male
  Weight: 66 kg

DRUGS (3)
  1. COUMADIN [Suspect]
     Indication: CEREBROVASCULAR ACCIDENT
     Dosage: 5MG1/2TAB6D/WK,INCRSD5MG1/2TAB/D,REDCD5MG1/2TAB6DAYS/WK,INCRD5MG1/2TAB/D,REDCD5MG1/2TAB5D/WK
     Dates: start: 19870101
  2. FLOMAX [Concomitant]
  3. LIPITOR [Concomitant]

REACTIONS (1)
  - INTERNATIONAL NORMALISED RATIO FLUCTUATION [None]
